FAERS Safety Report 8079181-7 (Version None)
Quarter: 2012Q1

REPORT INFORMATION
  Report Type: 
  Country: None (occurrence: None)
  Receive Date: 20120128
  Receipt Date: 20110810
  Transmission Date: 20120608
  Serious: No
  Sender: FDA-Public Use
  Company Number: US-ABBOTT-11P-163-0845440-00

PATIENT
  Age: 20 Year
  Sex: Male

DRUGS (8)
  1. HUMIRA [Suspect]
     Dosage: 1 INJECTION DAY 29
     Route: 058
  2. HUMIRA [Suspect]
     Indication: CROHN'S DISEASE
     Dosage: 4 INJECTIONS DAY 1
     Route: 058
     Dates: start: 20110725, end: 20110725
  3. HUMIRA [Suspect]
     Dosage: 2 INJECTIONS DAY 15
     Route: 058
  4. HUMIRA [Suspect]
     Dosage: MAINTAIN DOSE
     Route: 058
  5. VITAMIN D [Concomitant]
     Indication: PRODUCT USED FOR UNKNOWN INDICATION
  6. VITAMIN B-12 [Concomitant]
     Indication: PRODUCT USED FOR UNKNOWN INDICATION
     Route: 050
  7. METHOTREXATE [Concomitant]
     Indication: PRODUCT USED FOR UNKNOWN INDICATION
     Dosage: 5 TABLETS WEEKLY
  8. FOLIC ACID [Concomitant]
     Indication: PRODUCT USED FOR UNKNOWN INDICATION

REACTIONS (1)
  - INJECTION SITE PAIN [None]
